FAERS Safety Report 25685435 (Version 1)
Quarter: 2025Q3

REPORT INFORMATION
  Report Type: Spontaneous
  Country: EU (occurrence: EU)
  Receive Date: 20250815
  Receipt Date: 20250815
  Transmission Date: 20251020
  Serious: Yes (Other)
  Sender: PFIZER
  Company Number: EU-PFIZER INC-PV202500098028

PATIENT
  Sex: Female

DRUGS (4)
  1. LORLATINIB [Suspect]
     Active Substance: LORLATINIB
     Indication: Non-small cell lung cancer
  2. LORLATINIB [Suspect]
     Active Substance: LORLATINIB
     Dosage: 75 MG, DAILY
  3. LORLATINIB [Suspect]
     Active Substance: LORLATINIB
     Dosage: 50 MG, DAILY
  4. LORLATINIB [Suspect]
     Active Substance: LORLATINIB
     Dosage: 25 MG, DAILY

REACTIONS (3)
  - Hallucination, auditory [Recovering/Resolving]
  - Visual impairment [Recovering/Resolving]
  - Off label use [Unknown]
